FAERS Safety Report 5726210-9 (Version None)
Quarter: 2008Q2

REPORT INFORMATION
  Report Type: 
  Country: None (occurrence: None)
  Receive Date: 20080502
  Receipt Date: 20080418
  Transmission Date: 20081010
  Serious: Yes (Other)
  Sender: FDA-Public Use
  Company Number: US-JNJFOC-20080405846

PATIENT
  Sex: Female

DRUGS (3)
  1. DURAGESIC-100 [Suspect]
     Indication: PAIN
     Route: 062
  2. FENTANYL TRANSDERMAL SYSTEM [Suspect]
     Route: 062
  3. FENTANYL TRANSDERMAL SYSTEM [Suspect]
     Indication: PAIN
     Dosage: STOPPED IN ^NOV^
     Route: 062

REACTIONS (10)
  - APPLICATION SITE REACTION [None]
  - FORMICATION [None]
  - MALAISE [None]
  - MULTIPLE SCLEROSIS [None]
  - MUSCLE DISORDER [None]
  - PHARMACEUTICAL PRODUCT COMPLAINT [None]
  - SKIN WRINKLING [None]
  - SYNCOPE [None]
  - THERAPY CESSATION [None]
  - WRONG TECHNIQUE IN DRUG USAGE PROCESS [None]
